FAERS Safety Report 8342872-4 (Version None)
Quarter: 2012Q2

REPORT INFORMATION
  Report Type: 
  Country: None (occurrence: None)
  Receive Date: 20120508
  Receipt Date: 20120430
  Transmission Date: 20120825
  Serious: Yes (Other)
  Sender: FDA-Public Use
  Company Number: US-TEVA-335911USA

PATIENT
  Age: 14 Year
  Sex: Female

DRUGS (1)
  1. PAMIDRONIC ACID [Suspect]
     Indication: CEREBRAL PALSY
     Dosage: EVERY 3-4 MONTHS OVER 3-DAY PERIOD, FOR A TOTAL OF 5 CYCLES
     Route: 042

REACTIONS (1)
  - FEMUR FRACTURE [None]
